FAERS Safety Report 18884322 (Version 1)
Quarter: 2021Q1

REPORT INFORMATION
  Report Type: Spontaneous
  Country: US (occurrence: US)
  Receive Date: 20210211
  Receipt Date: 20210211
  Transmission Date: 20210420
  Serious: No
  Sender: FDA-Public Use
  Company Number: None

PATIENT
  Age: 64 Year
  Sex: Female
  Weight: 54 kg

DRUGS (7)
  1. MAXALT [Concomitant]
     Active Substance: RIZATRIPTAN BENZOATE
  2. BAQSIMI [Suspect]
     Active Substance: GLUCAGON
     Indication: HYPOGLYCAEMIA
     Dosage: ?          QUANTITY:1 INHALATION(S);OTHER FREQUENCY:USE ONCE, AS NEEDE;?
     Route: 055
     Dates: start: 20210202, end: 20210202
  3. CORTEF [Concomitant]
     Active Substance: HYDROCORTISONE
  4. VITAMIN D3 [Concomitant]
     Active Substance: CHOLECALCIFEROL
  5. SYNTHROID [Concomitant]
     Active Substance: LEVOTHYROXINE SODIUM
  6. HUMALOG [Concomitant]
     Active Substance: INSULIN LISPRO
  7. FERROUS SULFATE. [Concomitant]
     Active Substance: FERROUS SULFATE

REACTIONS (7)
  - Nausea [None]
  - Pain [None]
  - Adrenal insufficiency [None]
  - Blood glucose increased [None]
  - Headache [None]
  - Vomiting [None]
  - Aggression [None]

NARRATIVE: CASE EVENT DATE: 20210202
